FAERS Safety Report 20332809 (Version 12)
Quarter: 2022Q2

REPORT INFORMATION
  Report Type: Report from Study
  Country: PT (occurrence: PT)
  Receive Date: 20220113
  Receipt Date: 20220527
  Transmission Date: 20220720
  Serious: Yes (Life-Threatening)
  Sender: FDA-Public Use
  Company Number: PT-SA-SAC20220111000810

PATIENT
  Age: 6 Year
  Sex: Female
  Weight: 16.9 kg

DRUGS (15)
  1. ISATUXIMAB [Suspect]
     Active Substance: ISATUXIMAB
     Indication: Acute myeloid leukaemia
     Dosage: 20 MG/KG, QW
     Route: 042
     Dates: start: 20220110, end: 20220110
  2. DEXAMETHASONE [Suspect]
     Active Substance: DEXAMETHASONE
     Indication: Acute myeloid leukaemia
     Dosage: UNK UNK, QW
     Route: 042
  3. DEXAMETHASONE [Suspect]
     Active Substance: DEXAMETHASONE
     Dosage: UNK, QW
     Route: 042
  4. ACETAMINOPHEN [Concomitant]
     Active Substance: ACETAMINOPHEN
     Indication: Prophylaxis
     Dosage: 250 MG
     Route: 048
     Dates: start: 20220110, end: 20220110
  5. CLEMASTINE [Concomitant]
     Active Substance: CLEMASTINE
     Indication: Prophylaxis
     Dosage: 0.4 MG
     Route: 042
     Dates: start: 20220110, end: 20220110
  6. DEXAMETHASONE [Concomitant]
     Active Substance: DEXAMETHASONE
     Indication: Prophylaxis
     Dosage: UNK
     Route: 042
     Dates: start: 20220110, end: 20220110
  7. DEXAMETHASONE [Concomitant]
     Active Substance: DEXAMETHASONE
     Dosage: 7.3 MG
     Route: 042
     Dates: start: 20220107, end: 20220109
  8. ONDANSETRON [Concomitant]
     Active Substance: ONDANSETRON
     Indication: Prophylaxis
     Dosage: UNK
     Route: 042
     Dates: start: 20210904, end: 20220120
  9. ACYCLOVIR [Concomitant]
     Active Substance: ACYCLOVIR
     Indication: Prophylaxis
     Dosage: UNK
     Route: 042
     Dates: start: 20211217
  10. NYSTATIN [Concomitant]
     Active Substance: NYSTATIN
     Dosage: UNK
     Route: 048
     Dates: start: 20211204, end: 20220120
  11. COTRIMOXAZOLE [Concomitant]
     Active Substance: SULFAMETHOXAZOLE\TRIMETHOPRIM
     Indication: Prophylaxis
     Dosage: UNK
     Route: 042
     Dates: start: 20210911, end: 20220120
  12. ESOMEPRAZOLE [Concomitant]
     Active Substance: ESOMEPRAZOLE
     Indication: Prophylaxis
     Dosage: UNK
     Route: 048
     Dates: start: 20211009
  13. AMPICILINA [AMPICILLIN] [Concomitant]
     Dosage: UNK
     Route: 042
     Dates: start: 20211221, end: 20220106
  14. AMPHOTERICIN B [Concomitant]
     Active Substance: AMPHOTERICIN B
     Indication: Prophylaxis
     Dosage: UNK
     Route: 042
     Dates: start: 20210927
  15. MORPHINE [Concomitant]
     Active Substance: MORPHINE
     Dosage: UNK
     Route: 042
     Dates: start: 20211217, end: 20220104

REACTIONS (1)
  - Infusion related reaction [Recovered/Resolved]

NARRATIVE: CASE EVENT DATE: 20220110
